FAERS Safety Report 5403513-9 (Version None)
Quarter: 2007Q3

REPORT INFORMATION
  Report Type: 
  Country: None (occurrence: None)
  Receive Date: 20070713
  Receipt Date: 20070320
  Transmission Date: 20080115
  Serious: Yes (Other)
  Sender: FDA-Public Use
  Company Number: US-JNJFOC-20060601812

PATIENT
  Age: 32 Year
  Sex: Female
  Weight: 76.295 kg

DRUGS (15)
  1. ORTHO EVRA [Suspect]
     Indication: DRUG USE FOR UNKNOWN INDICATION
     Dosage: TRANSDERMAL
     Route: 062
     Dates: start: 20021201, end: 20030101
  2. FROVA (ALL OTHER THERAPEUTIC PRODUCTS) [Concomitant]
  3. PHENERGAN [Concomitant]
  4. IBUPROFEN [Concomitant]
  5. LAMICTAL [Concomitant]
  6. VIOXX [Concomitant]
  7. PANTANOL (ALL OTHER THERAPEUTIC PRODUCTS) [Concomitant]
  8. INDERAL [Concomitant]
  9. NEXIUM [Concomitant]
  10. ALLEGRA [Concomitant]
  11. WELLBUTRIN [Concomitant]
  12. SKELAXIN [Concomitant]
  13. SYNTHROID [Concomitant]
  14. EFFEXOR [Concomitant]
  15. KLONOPIN [Concomitant]

REACTIONS (1)
  - DEEP VEIN THROMBOSIS [None]
